FAERS Safety Report 4461328-2 (Version None)
Quarter: 2004Q3

REPORT INFORMATION
  Report Type: 
  Country: None (occurrence: None)
  Receive Date: 20040920
  Receipt Date: 20040909
  Transmission Date: 20050211
  Serious: Yes (Hospitalization)
  Sender: FDA-Public Use
  Company Number: 2004-03014

PATIENT
  Age: 56 Year
  Sex: Male

DRUGS (1)
  1. IMMUCYST (BCG  - IT (CONNAUGHT)), AVENTIS PASTEUR LTD.) [Suspect]
     Indication: BLADDER CANCER
     Dosage: B. IN., BLADDER
     Route: 043

REACTIONS (1)
  - INTERSTITIAL LUNG DISEASE [None]
